FAERS Safety Report 4895729-5 (Version None)
Quarter: 2005Q4

REPORT INFORMATION
  Report Type: 
  Country: None (occurrence: None)
  Receive Date: 20051223
  Receipt Date: 20051115
  Transmission Date: 20060501
  Serious: No
  Sender: FDA-Public Use
  Company Number: 219541

PATIENT
  Age: 62 Year
  Sex: Female
  Weight: 49.9 kg

DRUGS (3)
  1. AVASTIN [Suspect]
     Indication: COLON CANCER
     Dosage: 250 MG, Q2W, INTRAVENOUS
     Route: 042
     Dates: start: 20050322
  2. FLUOROURACIL [Concomitant]
  3. LEUCOVORIN CALCIUM [Concomitant]

REACTIONS (3)
  - DIARRHOEA [None]
  - OCCULT BLOOD POSITIVE [None]
  - WEIGHT DECREASED [None]
